FAERS Safety Report 20836003 (Version 1)
Quarter: 2022Q2

REPORT INFORMATION
  Report Type: Spontaneous
  Country: US (occurrence: US)
  Receive Date: 20220516
  Receipt Date: 20220516
  Transmission Date: 20220721
  Serious: Yes (Other)
  Sender: FDA-Public Use
  Company Number: US-SA-2022SA174235

PATIENT
  Age: 59 Year
  Sex: Female

DRUGS (6)
  1. ALEMTUZUMAB [Suspect]
     Active Substance: ALEMTUZUMAB
     Indication: T-cell prolymphocytic leukaemia
  2. ALEMTUZUMAB [Suspect]
     Active Substance: ALEMTUZUMAB
     Indication: Leukaemia recurrent
  3. PENTOSTATIN [Suspect]
     Active Substance: PENTOSTATIN
     Indication: Leukaemia recurrent
  4. PENTOSTATIN [Suspect]
     Active Substance: PENTOSTATIN
     Indication: T-cell prolymphocytic leukaemia
  5. CYCLOSPORINE [Concomitant]
     Active Substance: CYCLOSPORINE
     Indication: Prophylaxis against graft versus host disease
  6. MYCOPHENOLATE MOFETIL [Concomitant]
     Active Substance: MYCOPHENOLATE MOFETIL
     Indication: Prophylaxis against graft versus host disease

REACTIONS (2)
  - Cytopenia [Recovering/Resolving]
  - Platelet count decreased [Recovering/Resolving]
